FAERS Safety Report 5072523-6 (Version None)
Quarter: 2006Q3

REPORT INFORMATION
  Report Type: 
  Country: None (occurrence: None)
  Receive Date: 20060807
  Receipt Date: 20060726
  Transmission Date: 20061208
  Serious: Yes (Hospitalization)
  Sender: FDA-Public Use
  Company Number: ES-BRISTOL-MYERS SQUIBB COMPANY-13455928

PATIENT
  Age: 68 Year
  Sex: Male
  Weight: 64 kg

DRUGS (11)
  1. TAXOL [Suspect]
     Indication: NON-SMALL CELL LUNG CANCER
     Route: 042
     Dates: start: 20060512, end: 20060512
  2. CARBOPLATIN [Suspect]
     Indication: NON-SMALL CELL LUNG CANCER METASTATIC
     Route: 042
     Dates: start: 20060512, end: 20060512
  3. DILTIAZEM HCL [Concomitant]
     Route: 048
     Dates: start: 20060223, end: 20060609
  4. OMEPRAZOLE [Concomitant]
     Route: 048
     Dates: start: 20060126
  5. MST [Concomitant]
     Route: 048
     Dates: start: 20060524
  6. IRON [Concomitant]
     Route: 048
     Dates: start: 20060307
  7. METHOTREXATE [Concomitant]
     Route: 048
     Dates: start: 20060517
  8. CALCIUM FOLINATE [Concomitant]
     Route: 048
     Dates: start: 20060524
  9. CILAZAPRIL [Concomitant]
     Route: 048
     Dates: start: 20060126
  10. DECORTIN [Concomitant]
     Route: 048
     Dates: start: 20060126
  11. SEVREDOL [Concomitant]
     Route: 048
     Dates: start: 20060602, end: 20060609

REACTIONS (2)
  - ABDOMINAL SEPSIS [None]
  - DIARRHOEA [None]
